FAERS Safety Report 22103104 (Version 2)
Quarter: 2023Q1

REPORT INFORMATION
  Report Type: Spontaneous
  Country: US (occurrence: US)
  Receive Date: 20230316
  Receipt Date: 20230320
  Transmission Date: 20230417
  Serious: No
  Sender: FDA-Public Use
  Company Number: US-PFIZER INC-202300100160

PATIENT
  Age: 28 Year
  Sex: Female
  Weight: 66.22 kg

DRUGS (2)
  1. DEPO-PROVERA [Suspect]
     Active Substance: MEDROXYPROGESTERONE ACETATE
     Indication: Endometriosis
     Dosage: EVERY 3 MONTHS
     Dates: start: 20221204
  2. TESTOSTERONE [Concomitant]
     Active Substance: TESTOSTERONE
     Indication: Endometriosis
     Dosage: 0.3ML EVERY FRIDAY BY INJECTION

REACTIONS (5)
  - Accidental exposure to product [Unknown]
  - Exposure via skin contact [Unknown]
  - Product solubility abnormal [Unknown]
  - Needle issue [Unknown]
  - Off label use [Unknown]

NARRATIVE: CASE EVENT DATE: 20221201
